FAERS Safety Report 6398337-2 (Version None)
Quarter: 2009Q4

REPORT INFORMATION
  Report Type: 
  Country: None (occurrence: None)
  Receive Date: 20091007
  Receipt Date: 20091001
  Transmission Date: 20100525
  Serious: Yes (Hospitalization)
  Sender: FDA-Public Use
  Company Number: 2009SP028285

PATIENT
  Age: 61 Year
  Sex: Female

DRUGS (2)
  1. NOXAFIL [Suspect]
     Indication: FUNGAL INFECTION
     Dosage: 200 MG; TID;
     Dates: start: 20090801, end: 20090901
  2. VINCRISTINE [Suspect]
     Indication: ACUTE LYMPHOCYTIC LEUKAEMIA
     Dosage: ; IV
     Route: 042
     Dates: start: 20090801, end: 20090801

REACTIONS (1)
  - MUCOSAL INFLAMMATION [None]
